FAERS Safety Report 7395623-4 (Version None)
Quarter: 2011Q2

REPORT INFORMATION
  Report Type: 
  Country: None (occurrence: None)
  Receive Date: 20110405
  Receipt Date: 20090928
  Transmission Date: 20111010
  Serious: Yes (Other)
  Sender: FDA-Public Use
  Company Number: PHHY2009DE40566

PATIENT
  Sex: Female
  Weight: 50 kg

DRUGS (3)
  1. PARACETAMOL [Concomitant]
     Indication: INFLUENZA LIKE ILLNESS
  2. EXTAVIA [Suspect]
     Indication: MULTIPLE SCLEROSIS
     Dosage: 1 ML DAILY
     Route: 058
     Dates: start: 20090824
  3. IBUPROFEN [Concomitant]
     Indication: INFLUENZA LIKE ILLNESS

REACTIONS (21)
  - INFLUENZA LIKE ILLNESS [None]
  - DECREASED APPETITE [None]
  - SKIN IRRITATION [None]
  - FALL [None]
  - HYPOTONIA [None]
  - ARTHRALGIA [None]
  - SKIN REACTION [None]
  - DIARRHOEA [None]
  - TEMPERATURE INTOLERANCE [None]
  - DEPRESSION [None]
  - ABDOMINAL PAIN UPPER [None]
  - INJECTION SITE REACTION [None]
  - ONYCHOCLASIS [None]
  - HEADACHE [None]
  - MOTOR DYSFUNCTION [None]
  - NAUSEA [None]
  - INJECTION SITE PAIN [None]
  - OEDEMA PERIPHERAL [None]
  - INJECTION SITE ERYTHEMA [None]
  - HAEMATOMA [None]
  - NAIL INFECTION [None]
